FAERS Safety Report 22261460 (Version 1)
Quarter: 2023Q2

REPORT INFORMATION
  Report Type: Spontaneous
  Country: JM (occurrence: JM)
  Receive Date: 20230427
  Receipt Date: 20230427
  Transmission Date: 20230722
  Serious: Yes (Other)
  Sender: FDA-Public Use
  Company Number: JM-BoehringerIngelheim-2023-BI-234237

PATIENT
  Age: 27 Year
  Sex: Female
  Weight: 181 kg

DRUGS (1)
  1. PRADAXA [Suspect]
     Active Substance: DABIGATRAN ETEXILATE MESYLATE
     Indication: Product used for unknown indication

REACTIONS (4)
  - Cerebrovascular accident [Unknown]
  - Deep vein thrombosis [Unknown]
  - Protein S deficiency [Unknown]
  - Protein C deficiency [Unknown]

NARRATIVE: CASE EVENT DATE: 20230401
